FAERS Safety Report 23305355 (Version 1)
Quarter: 2023Q4

REPORT INFORMATION
  Report Type: Spontaneous
  Country: ES (occurrence: ES)
  Receive Date: 20231218
  Receipt Date: 20231218
  Transmission Date: 20240110
  Serious: Yes (Other)
  Sender: FDA-Public Use
  Company Number: ES-PFIZER INC-PV202300194220

PATIENT
  Age: 69 Year
  Sex: Female

DRUGS (4)
  1. LETROZOLE [Suspect]
     Active Substance: LETROZOLE
     Indication: Breast cancer metastatic
     Dosage: 2.5 MILLIGRAM
     Route: 065
     Dates: start: 201807
  2. PALBOCICLIB [Suspect]
     Active Substance: PALBOCICLIB
     Indication: Breast cancer metastatic
     Dosage: 125 MILLIGRAM, CYCLICAL (125 MG/24 HOURS 3 WEEKS/4)
     Route: 065
     Dates: start: 201807
  3. PALBOCICLIB [Suspect]
     Active Substance: PALBOCICLIB
     Dosage: 100 MILLIGRAM, CYCLICAL (100 MG/24H, 3 WEEK/4)
     Route: 065
     Dates: start: 201808, end: 201812
  4. PALBOCICLIB [Suspect]
     Active Substance: PALBOCICLIB
     Dosage: 100 MILLIGRAM
     Route: 065
     Dates: start: 201812

REACTIONS (6)
  - Neutropenia [Unknown]
  - Transaminases increased [Recovered/Resolved]
  - Neoplasm progression [Recovering/Resolving]
  - Cholelithiasis [Unknown]
  - Depression [Unknown]
  - Nausea [Unknown]

NARRATIVE: CASE EVENT DATE: 20180801
